FAERS Safety Report 5402136-5 (Version None)
Quarter: 2007Q3

REPORT INFORMATION
  Report Type: 
  Country: None (occurrence: None)
  Receive Date: 20070730
  Receipt Date: 20070712
  Transmission Date: 20080115
  Serious: Yes (Other)
  Sender: FDA-Public Use
  Company Number: VNL_00663_2007

PATIENT
  Sex: Female
  Weight: 72.1219 kg

DRUGS (1)
  1. APOKYN [Suspect]
     Indication: PARKINSON'S DISEASE
     Dosage: 0.2 ML QD SUBCUTANEOUS
     Route: 058
     Dates: start: 20070706

REACTIONS (8)
  - BLOOD PRESSURE INCREASED [None]
  - COLD SWEAT [None]
  - DRUG INEFFECTIVE [None]
  - DYSPNOEA [None]
  - HEADACHE [None]
  - HEART RATE INCREASED [None]
  - INJECTION SITE BRUISING [None]
  - RESPIRATORY RATE INCREASED [None]
